FAERS Safety Report 7733176-9 (Version None)
Quarter: 2011Q3

REPORT INFORMATION
  Report Type: 
  Country: None (occurrence: None)
  Receive Date: 20110902
  Receipt Date: 20110902
  Transmission Date: 20111222
  Serious: Yes (Death)
  Sender: FDA-Public Use
  Company Number: None

PATIENT
  Age: 87 Year
  Sex: Male
  Weight: 74.8435 kg

DRUGS (2)
  1. PRADAXA [Suspect]
     Indication: ATRIAL FIBRILLATION
     Dosage: 150 MG. TAB 1 TABLET MOUTH
     Route: 048
     Dates: start: 20110330
  2. PRADAXA [Suspect]
     Indication: ATRIAL FIBRILLATION
     Dosage: 150 MG. TAB 1 TABLET MOUTH
     Route: 048
     Dates: start: 20110329

REACTIONS (1)
  - CEREBROVASCULAR ACCIDENT [None]
